FAERS Safety Report 24133873 (Version 1)
Quarter: 2024Q3

REPORT INFORMATION
  Report Type: Spontaneous
  Country: PL (occurrence: PL)
  Receive Date: 20240724
  Receipt Date: 20240724
  Transmission Date: 20241016
  Serious: Yes (Life-Threatening)
  Sender: ELI LILLY AND CO
  Company Number: PL-ELI_LILLY_AND_COMPANY-PL202407014860

PATIENT
  Age: 39 Year
  Sex: Male
  Weight: 75 kg

DRUGS (2)
  1. OLANZAPINE [Suspect]
     Active Substance: OLANZAPINE
     Indication: Product used for unknown indication
     Dosage: 30 MG, UNKNOWN
     Route: 048
     Dates: start: 20200503, end: 20200503
  2. FLUOXETINE HYDROCHLORIDE [Suspect]
     Active Substance: FLUOXETINE HYDROCHLORIDE
     Indication: Product used for unknown indication
     Dosage: 30 MG, UNKNOWN
     Route: 048
     Dates: start: 20200503, end: 20200503

REACTIONS (2)
  - Suicide attempt [Recovering/Resolving]
  - Toxicity to various agents [Recovering/Resolving]

NARRATIVE: CASE EVENT DATE: 20200503
